FAERS Safety Report 21038421 (Version 3)
Quarter: 2023Q4

REPORT INFORMATION
  Report Type: Report from Study
  Country: US (occurrence: US)
  Receive Date: 20220704
  Receipt Date: 20231006
  Transmission Date: 20240110
  Serious: Yes (Other)
  Sender: FDA-Public Use
  Company Number: US-NOVOPROD-932469

PATIENT
  Sex: Male

DRUGS (1)
  1. NOVOLOG [Suspect]
     Active Substance: INSULIN ASPART
     Indication: Diabetes mellitus
     Dosage: UNK
     Route: 058

REACTIONS (6)
  - Diabetic neuropathy [Unknown]
  - Dyspnoea [Unknown]
  - Localised infection [Unknown]
  - Gait inability [Unknown]
  - Blood glucose increased [Unknown]
  - Nail discolouration [Unknown]
